FAERS Safety Report 5854323-X (Version None)
Quarter: 2008Q3

REPORT INFORMATION
  Report Type: 
  Country: None (occurrence: None)
  Receive Date: 20080822
  Receipt Date: 20080814
  Transmission Date: 20090109
  Serious: Yes (Death)
  Sender: FDA-Public Use
  Company Number: NZ-GENENTECH-266420

PATIENT
  Sex: Female

DRUGS (6)
  1. MABTHERA [Suspect]
     Indication: CHRONIC LYMPHOCYTIC LEUKAEMIA TRANSFORMATION
     Dosage: 700 MG, UNK
     Route: 042
     Dates: start: 20080415, end: 20080626
  2. MABTHERA [Suspect]
     Dosage: 600 MG, UNK
  3. CYCLOPHOSPHAMIDE [Concomitant]
     Indication: CHRONIC LYMPHOCYTIC LEUKAEMIA TRANSFORMATION
     Dosage: UNK
     Dates: start: 20080415, end: 20080626
  4. DOXORUBICIN HCL [Concomitant]
     Indication: CHRONIC LYMPHOCYTIC LEUKAEMIA TRANSFORMATION
     Dosage: UNK
     Dates: start: 20080415, end: 20080626
  5. VINCRISTINE [Concomitant]
     Indication: CHRONIC LYMPHOCYTIC LEUKAEMIA TRANSFORMATION
     Dosage: UNK
     Dates: start: 20080415, end: 20080626
  6. PREDNISONE TAB [Concomitant]
     Indication: CHRONIC LYMPHOCYTIC LEUKAEMIA TRANSFORMATION
     Dosage: UNK
     Dates: start: 20080415, end: 20080626

REACTIONS (2)
  - CEREBRAL HAEMORRHAGE [None]
  - NEUTROPENIA [None]
